FAERS Safety Report 9587293 (Version 3)
Quarter: 2013Q4

REPORT INFORMATION
  Report Type: Report from Study
  Country: JP (occurrence: JP)
  Receive Date: 20131003
  Receipt Date: 20131031
  Transmission Date: 20140711
  Serious: Yes (Death, Life-Threatening, Hospitalization)
  Sender: FDA-Public Use
  Company Number: JP-SA-THYM-1003758

PATIENT
  Age: 56 Year
  Sex: Male
  Weight: 71 kg

DRUGS (37)
  1. THYMOGLOBULINE [Suspect]
     Indication: ACUTE GRAFT VERSUS HOST DISEASE
     Dosage: 97.5 MG, UNK
     Route: 065
     Dates: start: 20120622, end: 20120622
  2. MYCOPHENOLATE MOFETIL [Suspect]
     Indication: ACUTE GRAFT VERSUS HOST DISEASE
     Dosage: UNK
     Route: 065
     Dates: start: 20120827, end: 20121127
  3. PREDNISOLONE [Suspect]
     Indication: ACUTE GRAFT VERSUS HOST DISEASE
     Dosage: UNK
     Route: 065
     Dates: start: 20120501, end: 20121201
  4. METHOTREXATE [Concomitant]
     Indication: PROPHYLAXIS AGAINST GRAFT VERSUS HOST DISEASE
     Dosage: UNK
     Route: 065
     Dates: start: 20120406, end: 20120406
  5. METHOTREXATE [Concomitant]
     Indication: PROPHYLAXIS AGAINST GRAFT VERSUS HOST DISEASE
     Dosage: UNK
     Route: 065
     Dates: start: 20120408, end: 20120408
  6. METHOTREXATE [Concomitant]
     Indication: PROPHYLAXIS AGAINST GRAFT VERSUS HOST DISEASE
     Dosage: UNK
     Route: 065
     Dates: start: 20120411, end: 20120411
  7. ACICLOVIR [Concomitant]
     Indication: ANTIVIRAL PROPHYLAXIS
     Dosage: UNK
     Route: 065
     Dates: start: 20120802
  8. CRAVIT [Concomitant]
     Indication: BACTERIAL INFECTION
     Dosage: UNK
     Route: 065
     Dates: start: 20120622, end: 20120625
  9. CRAVIT [Concomitant]
     Indication: BACTERIAL INFECTION
     Dosage: UNK
     Route: 065
     Dates: start: 20120928, end: 20121002
  10. SANDIMMUN [Concomitant]
     Indication: PROPHYLAXIS AGAINST GRAFT VERSUS HOST DISEASE
     Dosage: UNK
     Route: 065
     Dates: start: 20120404, end: 20120718
  11. ZOSYN [Concomitant]
     Indication: BACTERIAL INFECTION
     Dosage: UNK
     Route: 065
     Dates: start: 20120625, end: 20120704
  12. ZOSYN [Concomitant]
     Indication: BACTERIAL INFECTION
     Dates: start: 20120805, end: 20120817
  13. ZOSYN [Concomitant]
     Indication: BACTERIAL INFECTION
     Dates: start: 20120831, end: 20120913
  14. TRANEXAMIC ACID [Concomitant]
     Indication: THROMBOTIC MICROANGIOPATHY
     Dosage: UNK
     Route: 065
     Dates: start: 20120529, end: 20120924
  15. INSULIN HUMAN [Concomitant]
     Indication: DIABETES MELLITUS
     Dosage: UNK
     Route: 065
     Dates: start: 20120529, end: 20121201
  16. FAMOTIDINE [Concomitant]
     Indication: PROPHYLAXIS AGAINST GASTROINTESTINAL ULCER
     Dosage: UNK
     Route: 065
     Dates: start: 201206, end: 20120731
  17. FAMOTIDINE [Concomitant]
     Indication: PROPHYLAXIS AGAINST GASTROINTESTINAL ULCER
     Dosage: UNK
     Route: 065
     Dates: start: 20121121, end: 20121201
  18. MICAFUNGIN SODIUM [Concomitant]
     Indication: ANTIFUNGAL PROPHYLAXIS
     Dosage: UNK
     Route: 065
     Dates: start: 20120705, end: 20121105
  19. TACROLIMUS [Concomitant]
     Indication: ACUTE GRAFT VERSUS HOST DISEASE
     Dosage: UNK
     Route: 065
     Dates: start: 20120719, end: 20121201
  20. ALL OTHER THERAPEUTIC PRODUCTS [Concomitant]
     Indication: ACUTE GRAFT VERSUS HOST DISEASE
     Dosage: UNK
     Route: 065
     Dates: start: 20120604, end: 20121201
  21. FLUCONAZOLE [Concomitant]
     Indication: ANTIFUNGAL PROPHYLAXIS
     Dosage: UNK
     Route: 065
     Dates: start: 20120608, end: 20120705
  22. CORTICOSTEROID NOS [Concomitant]
     Indication: ACUTE GRAFT VERSUS HOST DISEASE
     Dosage: UNK
     Route: 065
     Dates: start: 20121005, end: 20121007
  23. ALL OTHER THERAPEUTIC PRODUCTS [Concomitant]
     Indication: ACUTE GRAFT VERSUS HOST DISEASE
     Dosage: UNK
     Route: 065
     Dates: start: 20120627, end: 20121201
  24. CHLORPHENAMINE MALEATE [Concomitant]
     Indication: ACUTE GRAFT VERSUS HOST DISEASE
     Dosage: UNK
     Route: 065
     Dates: start: 20120719, end: 20120722
  25. CEFEPIME HYDROCHLORIDE [Concomitant]
     Indication: INFECTION PROPHYLAXIS
     Dosage: UNK
     Route: 065
     Dates: start: 20120914, end: 20120927
  26. IMMUNOGLOBULIN HUMAN NORMAL [Concomitant]
     Indication: INFECTION PROPHYLAXIS
     Dosage: UNK
     Route: 065
     Dates: start: 20120629, end: 20121130
  27. BEPOTASTINE BESILATE [Concomitant]
     Indication: ACUTE GRAFT VERSUS HOST DISEASE
     Dosage: UNK
     Route: 065
     Dates: start: 20120720, end: 20121120
  28. RABEPRAZOLE SODIUM [Concomitant]
     Indication: PROPHYLAXIS AGAINST GASTROINTESTINAL ULCER
     Dosage: UNK
     Route: 065
     Dates: start: 20120731, end: 20121113
  29. URSODEOXYCHOLIC ACID [Concomitant]
     Indication: ACUTE GRAFT VERSUS HOST DISEASE
     Dosage: UNK
     Route: 065
     Dates: start: 20120816, end: 20121127
  30. SULFAMETHOPRIM [Concomitant]
     Indication: ANTIFUNGAL PROPHYLAXIS
     Dosage: UNK
     Route: 065
     Dates: start: 20120820, end: 20121126
  31. FENTANYL CITRATE [Concomitant]
     Indication: GRAFT VERSUS HOST DISEASE
     Dosage: UNK
     Route: 065
     Dates: start: 20120703, end: 20121201
  32. POTASSIUM ASPARTATE [Concomitant]
     Indication: PROPHYLAXIS
     Dosage: UNK
     Route: 065
     Dates: start: 20121011, end: 20121122
  33. CORTICOSTEROID NOS [Concomitant]
     Indication: PROPHYLAXIS AGAINST GRAFT VERSUS HOST DISEASE
     Dosage: UNK
     Route: 065
     Dates: start: 20120501, end: 20121201
  34. HUMAN RED BLOOD CELLS [Concomitant]
     Indication: THROMBOTIC MICROANGIOPATHY
     Dosage: UNK
     Route: 065
     Dates: start: 20120410, end: 20121130
  35. PLATELETS, HUMAN BLOOD [Concomitant]
     Indication: THROMBOTIC MICROANGIOPATHY
     Dosage: UNK
     Route: 065
     Dates: start: 20120404, end: 20121201
  36. DRIED HUMAN PLASMA [Concomitant]
     Indication: THROMBOTIC MICROANGIOPATHY
     Dosage: UNK
     Route: 065
     Dates: start: 20120507, end: 20121201
  37. CRAVIT [Concomitant]
     Indication: BACTERIAL INFECTION
     Dosage: UNK
     Route: 042
     Dates: start: 20120801, end: 20120804

REACTIONS (11)
  - Blood bilirubin increased [Not Recovered/Not Resolved]
  - Pleural effusion [Not Recovered/Not Resolved]
  - Pericardial effusion [Not Recovered/Not Resolved]
  - Febrile neutropenia [Recovered/Resolved]
  - Fungal abscess central nervous system [Fatal]
  - Bronchopulmonary aspergillosis [Not Recovered/Not Resolved]
  - Neutrophil count decreased [Recovered/Resolved]
  - Staphylococcal sepsis [Recovered/Resolved]
  - Enterococcal sepsis [Recovered/Resolved]
  - Enterococcal sepsis [Recovered/Resolved]
  - Hypertension [Recovered/Resolved]
